FAERS Safety Report 20748417 (Version 2)
Quarter: 2023Q4

REPORT INFORMATION
  Report Type: Report from Study
  Country: US (occurrence: US)
  Receive Date: 20220426
  Receipt Date: 20231114
  Transmission Date: 20240109
  Serious: No
  Sender: FDA-Public Use
  Company Number: US-ACADIA PHARMACEUTICALS INC.-ACA-2022-PIM-001186

PATIENT
  Sex: Male

DRUGS (5)
  1. NUPLAZID [Suspect]
     Active Substance: PIMAVANSERIN TARTRATE
     Indication: Parkinson^s disease
     Dosage: 34 MILLIGRAM, QD EVERY EVENING
     Route: 048
     Dates: start: 202201
  2. SCOPOLAMINE [Suspect]
     Active Substance: SCOPOLAMINE
     Route: 062
  3. SEROQUEL [Suspect]
     Active Substance: QUETIAPINE FUMARATE
     Dosage: UNK, BID
  4. ASPIRIN [Concomitant]
     Active Substance: ASPIRIN
  5. TYLENOL [Concomitant]
     Active Substance: ACETAMINOPHEN

REACTIONS (7)
  - Speech disorder [Unknown]
  - Dizziness [Unknown]
  - Delirium [Unknown]
  - Salivary hypersecretion [Unknown]
  - Balance disorder [Unknown]
  - Condition aggravated [Unknown]
  - Somnolence [Unknown]
